FAERS Safety Report 10765637 (Version 2)
Quarter: 2015Q1

REPORT INFORMATION
  Report Type: Spontaneous
  Country: US (occurrence: US)
  Receive Date: 20150205
  Receipt Date: 20150206
  Transmission Date: 20150721
  Serious: Yes (Death, Other)
  Sender: FDA-Public Use
  Company Number: US-ELI_LILLY_AND_COMPANY-US201502000646

PATIENT
  Age: 34 Year
  Sex: Female

DRUGS (6)
  1. DOXYLAMINE [Suspect]
     Active Substance: DOXYLAMINE
     Indication: PRODUCT USED FOR UNKNOWN INDICATION
     Route: 065
  2. DEXTROMETHORPHAN                   /00048102/ [Suspect]
     Active Substance: DEXTROMETHORPHAN HYDROBROMIDE
     Indication: PRODUCT USED FOR UNKNOWN INDICATION
     Route: 065
  3. FLUOXETINE HYDROCHLORIDE. [Suspect]
     Active Substance: FLUOXETINE HYDROCHLORIDE
     Indication: PRODUCT USED FOR UNKNOWN INDICATION
     Route: 065
  4. ALPRAZOLAM. [Suspect]
     Active Substance: ALPRAZOLAM
     Indication: PRODUCT USED FOR UNKNOWN INDICATION
     Route: 065
  5. FREON 11 [Suspect]
     Active Substance: TRICHLOROMONOFLUOROMETHANE
     Indication: PRODUCT USED FOR UNKNOWN INDICATION
     Route: 065
  6. DIPHENHYDRAMINE                    /00455701/ [Suspect]
     Active Substance: DIPHENHYDRAMINE
     Indication: PRODUCT USED FOR UNKNOWN INDICATION
     Route: 065

REACTIONS (2)
  - Drug abuse [Unknown]
  - Cardio-respiratory arrest [Fatal]
